FAERS Safety Report 7101338-X (Version None)
Quarter: 2010Q4

REPORT INFORMATION
  Report Type: 
  Country: None (occurrence: None)
  Receive Date: 20101115
  Receipt Date: 20101102
  Transmission Date: 20110411
  Serious: Yes (Other)
  Sender: FDA-Public Use
  Company Number: CH-JNJFOC-20101102721

PATIENT
  Age: 50 Year
  Sex: Male

DRUGS (5)
  1. RISPERIDONE [Suspect]
     Indication: SCHIZOAFFECTIVE DISORDER
     Route: 065
  2. RISPERIDONE [Suspect]
     Route: 065
  3. QUETIAPINE [Suspect]
     Indication: ILL-DEFINED DISORDER
     Route: 065
  4. QUETIAPINE [Suspect]
     Route: 065
  5. LITHIUM [Suspect]
     Indication: ILL-DEFINED DISORDER
     Route: 065

REACTIONS (4)
  - ABNORMAL BEHAVIOUR [None]
  - ANXIETY [None]
  - DECREASED ACTIVITY [None]
  - NEUROLEPTIC MALIGNANT SYNDROME [None]
